FAERS Safety Report 19761818 (Version 1)
Quarter: 2021Q3

REPORT INFORMATION
  Report Type: Spontaneous
  Country: US (occurrence: US)
  Receive Date: 20210827
  Receipt Date: 20210827
  Transmission Date: 20211014
  Serious: Yes (Hospitalization, Disabling, Other)
  Sender: FDA-Public Use
  Company Number: US-PURDUE-USA-2020-0281328

PATIENT
  Sex: Male

DRUGS (12)
  1. OXYCONTIN [Suspect]
     Active Substance: OXYCODONE HYDROCHLORIDE
     Indication: INTERVERTEBRAL DISC PROTRUSION
     Dosage: 40 MG, 8 TABLETS EVERY 12 HOURS
     Route: 048
  2. MS CONTIN [Suspect]
     Active Substance: MORPHINE SULFATE
     Indication: PRODUCT USED FOR UNKNOWN INDICATION
     Dosage: UNKNOWN
     Route: 048
  3. VALIUM [Suspect]
     Active Substance: DIAZEPAM
     Indication: HYPERVENTILATION
     Dosage: 10 MG, DAILY AT BEDTIME
     Route: 065
  4. VALIUM [Suspect]
     Active Substance: DIAZEPAM
     Indication: ANXIETY
  5. NEXIUM [Suspect]
     Active Substance: ESOMEPRAZOLE MAGNESIUM
     Indication: PRODUCT USED FOR UNKNOWN INDICATION
     Dosage: 40 MG, 1 DAILY
     Route: 065
  6. LEXAPRO [Suspect]
     Active Substance: ESCITALOPRAM OXALATE
     Indication: DEPRESSION
     Dosage: 20 MG, DAILY
     Route: 065
     Dates: start: 200403
  7. CELEXA [Suspect]
     Active Substance: CITALOPRAM HYDROBROMIDE
     Indication: PRODUCT USED FOR UNKNOWN INDICATION
     Dosage: 20 MG, DAILY
     Route: 065
  8. ACCUPRIL [Suspect]
     Active Substance: QUINAPRIL HYDROCHLORIDE
     Indication: PRODUCT USED FOR UNKNOWN INDICATION
     Dosage: 40 MG, DAILY
     Route: 065
  9. OXYCONTIN [Suspect]
     Active Substance: OXYCODONE HYDROCHLORIDE
     Indication: PAIN MANAGEMENT
     Dosage: 680 MG, DAILY
     Route: 048
  10. OXYCONTIN [Suspect]
     Active Substance: OXYCODONE HYDROCHLORIDE
     Dosage: 720 MG, DAILY
     Route: 048
  11. OXYCONTIN [Suspect]
     Active Substance: OXYCODONE HYDROCHLORIDE
     Indication: MUSCLE STRAIN
     Dosage: UNKNOWN
     Route: 048
     Dates: start: 1989
  12. ELAVIL [Suspect]
     Active Substance: AMITRIPTYLINE HYDROCHLORIDE
     Indication: PRODUCT USED FOR UNKNOWN INDICATION
     Dosage: 10 MG, 1 TO 2 AT BEDTIME
     Route: 065

REACTIONS (22)
  - Asthenia [Unknown]
  - Renal impairment [Unknown]
  - Loss of consciousness [Unknown]
  - Decreased interest [Unknown]
  - Anxiety [Recovering/Resolving]
  - Disability [Unknown]
  - Substance abuse [Unknown]
  - Abnormal behaviour [Unknown]
  - Respiratory arrest [Unknown]
  - Anger [Unknown]
  - Gastrooesophageal reflux disease [Unknown]
  - Renal failure [Unknown]
  - Pneumonia [Unknown]
  - Drug dependence [Unknown]
  - Impaired driving ability [Unknown]
  - Road traffic accident [Unknown]
  - Overdose [Unknown]
  - Hypertension [Unknown]
  - Drug tolerance increased [Unknown]
  - Quality of life decreased [Unknown]
  - Depression [Unknown]
  - Hyperventilation [Recovering/Resolving]

NARRATIVE: CASE EVENT DATE: 2004
